FAERS Safety Report 11652702 (Version 2)
Quarter: 2015Q4

REPORT INFORMATION
  Report Type: Spontaneous
  Country: HR (occurrence: HR)
  Receive Date: 20151022
  Receipt Date: 20151125
  Transmission Date: 20160304
  Serious: Yes (Life-Threatening)
  Sender: FDA-Public Use
  Company Number: HR-JNJFOC-20151015428

PATIENT
  Age: 46 Year
  Sex: Female
  Weight: 70 kg

DRUGS (1)
  1. CAELYX [Suspect]
     Active Substance: DOXORUBICIN HYDROCHLORIDE
     Indication: OVARIAN CANCER
     Route: 042
     Dates: start: 20151006, end: 20151006

REACTIONS (11)
  - Lethargy [Recovering/Resolving]
  - Pelvic pain [Recovered/Resolved]
  - Back pain [Recovered/Resolved]
  - Dyspnoea [Recovered/Resolved]
  - Erythema [Recovered/Resolved]
  - Bone pain [Recovered/Resolved]
  - Depressed level of consciousness [Recovered/Resolved]
  - Infusion related reaction [Unknown]
  - Rash [Unknown]
  - Asthenia [Unknown]
  - Hypersensitivity [Recovered/Resolved]

NARRATIVE: CASE EVENT DATE: 20151006
